FAERS Safety Report 9715236 (Version 2)
Quarter: 2013Q4

REPORT INFORMATION
  Report Type: Report from Study
  Country: PR (occurrence: PR)
  Receive Date: 20131126
  Receipt Date: 20131209
  Transmission Date: 20140711
  Serious: Yes (Death, Other)
  Sender: FDA-Public Use
  Company Number: PR-ABBVIE-13P-131-1172788-00

PATIENT
  Sex: Male

DRUGS (1)
  1. HUMIRA [Suspect]
     Indication: PSORIASIS
     Route: 058

REACTIONS (3)
  - Renal cancer [Fatal]
  - Chronic obstructive pulmonary disease [Unknown]
  - Embolism [Unknown]
